FAERS Safety Report 23605635 (Version 1)
Quarter: 2024Q1

REPORT INFORMATION
  Report Type: Spontaneous
  Country: US (occurrence: US)
  Receive Date: 20240307
  Receipt Date: 20240307
  Transmission Date: 20240410
  Serious: Yes (Hospitalization)
  Sender: FDA-Public Use
  Company Number: US-MYLANLABS-2024M1020600

PATIENT
  Age: 46 Year
  Sex: Female

DRUGS (1)
  1. CYTARABINE [Suspect]
     Active Substance: CYTARABINE
     Indication: Myeloid leukaemia
     Dosage: UNK; HIGH DOSE
     Route: 065

REACTIONS (3)
  - Respiratory failure [Recovering/Resolving]
  - Lactic acidosis [Recovering/Resolving]
  - Pulmonary toxicity [Recovering/Resolving]
